FAERS Safety Report 14112085 (Version 2)
Quarter: 2017Q4

REPORT INFORMATION
  Report Type: Spontaneous
  Country: IN (occurrence: IN)
  Receive Date: 20171020
  Receipt Date: 20171031
  Transmission Date: 20180321
  Serious: Yes (Death, Hospitalization, Other)
  Sender: FDA-Public Use
  Company Number: IN-INCYTE CORPORATION-2017IN008882

PATIENT

DRUGS (4)
  1. DEXAMETHASONE. [Suspect]
     Active Substance: DEXAMETHASONE
     Dosage: 2 MG, BID
     Route: 048
     Dates: start: 20170826, end: 20170913
  2. JAKAVI [Suspect]
     Active Substance: RUXOLITINIB
     Indication: MYELODYSPLASTIC SYNDROME
     Dosage: 15 MG, BID
     Route: 048
     Dates: start: 20170831, end: 20170902
  3. JAKAVI [Suspect]
     Active Substance: RUXOLITINIB
     Indication: HISTIOCYTOSIS HAEMATOPHAGIC
     Dosage: 15 MG, BID
     Route: 048
     Dates: start: 20170906, end: 20170913
  4. DEXAMETHASONE. [Suspect]
     Active Substance: DEXAMETHASONE
     Indication: HISTIOCYTOSIS HAEMATOPHAGIC
     Dosage: 8 MG, BID
     Route: 048
     Dates: start: 20170815, end: 20170825

REACTIONS (40)
  - Influenza [Fatal]
  - Hepatic function abnormal [Unknown]
  - Aspartate aminotransferase increased [Unknown]
  - Blood lactate dehydrogenase increased [Unknown]
  - Blood sodium decreased [Unknown]
  - Glomerular filtration rate decreased [Unknown]
  - Haematocrit decreased [Unknown]
  - Haemoglobin decreased [Unknown]
  - Product use in unapproved indication [Unknown]
  - Dyspnoea [Not Recovered/Not Resolved]
  - Blood bilirubin increased [Unknown]
  - Blood bicarbonate decreased [Unknown]
  - Platelet count decreased [Unknown]
  - Bilirubin conjugated increased [Unknown]
  - Blood albumin decreased [Unknown]
  - Mean cell haemoglobin concentration decreased [Unknown]
  - Blood phosphorus decreased [Unknown]
  - Blood potassium increased [Unknown]
  - International normalised ratio decreased [Unknown]
  - Red blood cell count decreased [Unknown]
  - Sepsis [Fatal]
  - Metabolic encephalopathy [Unknown]
  - White blood cell count decreased [Unknown]
  - Cholelithiasis [Unknown]
  - Renal disorder [Unknown]
  - Blood chloride decreased [Unknown]
  - Blood urea increased [Unknown]
  - Prothrombin time prolonged [Unknown]
  - Multiple organ dysfunction syndrome [Fatal]
  - Pneumonia [Fatal]
  - Myelodysplastic syndrome [Unknown]
  - Alanine aminotransferase increased [Unknown]
  - Gamma-glutamyltransferase increased [Unknown]
  - Protein total decreased [Unknown]
  - Blood creatinine increased [Unknown]
  - Blood glucose decreased [Unknown]
  - B-cell lymphoma [Fatal]
  - Decreased appetite [Not Recovered/Not Resolved]
  - Blood alkaline phosphatase increased [Unknown]
  - Splenomegaly [Unknown]

NARRATIVE: CASE EVENT DATE: 20170903
